FAERS Safety Report 4533821-5 (Version None)
Quarter: 2004Q4

REPORT INFORMATION
  Report Type: 
  Country: None (occurrence: None)
  Receive Date: 20041221
  Receipt Date: 20041018
  Transmission Date: 20050328
  Serious: Yes (Other)
  Sender: FDA-Public Use
  Company Number: US-MERCK-0410USA02613

PATIENT
  Age: 37 Year
  Sex: Female

DRUGS (2)
  1. VIOXX [Suspect]
     Indication: ARTHRITIS
     Route: 048
     Dates: start: 20011001, end: 20011001
  2. PRILOSEC [Concomitant]
     Route: 048

REACTIONS (4)
  - GASTRIC HAEMORRHAGE [None]
  - HAEMATOCHEZIA [None]
  - HEART RATE ABNORMAL [None]
  - MYOCARDIAL INFARCTION [None]
